FAERS Safety Report 4374935-2 (Version None)
Quarter: 2004Q2

REPORT INFORMATION
  Report Type: 
  Country: None (occurrence: None)
  Receive Date: 20040609
  Receipt Date: 20030725
  Transmission Date: 20050107
  Serious: Yes (Hospitalization)
  Sender: FDA-Public Use
  Company Number: GB-BRISTOL-MYERS SQUIBB COMPANY-12349288

PATIENT
  Age: 50 Year
  Sex: Male
  Weight: 71 kg

DRUGS (5)
  1. CYCLOPHOSPHAMIDE [Suspect]
     Indication: CHRONIC LYMPHOCYTIC LEUKAEMIA
     Route: 048
     Dates: start: 20030623, end: 20030627
  2. FLUDARABINE PHOSPHATE [Suspect]
     Indication: CHRONIC LYMPHOCYTIC LEUKAEMIA
     Route: 048
     Dates: start: 20030623, end: 20030627
  3. GRANISETRON [Suspect]
     Route: 048
     Dates: start: 20030626, end: 20030627
  4. CO-TRIMOXAZOL [Suspect]
     Route: 048
  5. ALLOPURINOL [Concomitant]
     Indication: TUMOUR NECROSIS
     Dates: start: 20030619, end: 20030629

REACTIONS (2)
  - LYMPHADENOPATHY [None]
  - PANCREATITIS ACUTE [None]
